FAERS Safety Report 20537926 (Version 2)
Quarter: 2022Q1

REPORT INFORMATION
  Report Type: Spontaneous
  Country: US (occurrence: US)
  Receive Date: 20220302
  Receipt Date: 20220304
  Transmission Date: 20220424
  Serious: Yes (Other)
  Sender: FDA-Public Use
  Company Number: US-Accord-255062

PATIENT
  Age: 77 Year
  Sex: Male
  Weight: 85.3 kg

DRUGS (3)
  1. CISPLATIN [Suspect]
     Active Substance: CISPLATIN
     Indication: Cholangiocarcinoma
     Dosage: 25 MG/M2 ON DAYS 1 AND 8 OF 21-DAY CYCLE
     Dates: start: 201912
  2. GEMCITABINE [Suspect]
     Active Substance: GEMCITABINE
     Indication: Cholangiocarcinoma
     Dosage: 800 MG/M2 ON DAYS 1 AND 8 OF 21-DAY CYCLE
     Dates: start: 201912
  3. PACLITAXEL [Suspect]
     Active Substance: PACLITAXEL
     Indication: Cholangiocarcinoma
     Dosage: 100 MG/M2 ON DAYS 1 AND 8 OF 21-DAY CYCLE
     Dates: start: 201912

REACTIONS (4)
  - Fatigue [Recovered/Resolved]
  - Off label use [Unknown]
  - Toxicity to various agents [Recovered/Resolved]
  - Thrombocytopenia [Recovered/Resolved]

NARRATIVE: CASE EVENT DATE: 20200311
